FAERS Safety Report 5853860-1 (Version None)
Quarter: 2008Q3

REPORT INFORMATION
  Report Type: 
  Country: None (occurrence: None)
  Receive Date: 20080822
  Receipt Date: 20080819
  Transmission Date: 20090109
  Serious: Yes (Other)
  Sender: FDA-Public Use
  Company Number: US-KINGPHARMUSA00001-K200800974

PATIENT

DRUGS (6)
  1. ALTACE [Suspect]
     Indication: HYPERTENSION
     Dosage: 5 MG, QD
     Route: 048
     Dates: start: 20080702, end: 20080718
  2. HYDROCHLOROTHIAZIDE [Suspect]
     Indication: HYPERTENSION
     Dosage: 25 MG, QD
     Route: 048
     Dates: start: 20080702, end: 20080718
  3. NOVAMINSULFON [Concomitant]
     Indication: ARTHRALGIA
     Dosage: 2 G, UNK
     Route: 048
  4. DIURETIKUM VERLA [Concomitant]
     Indication: HYPERTENSION
     Dosage: UNK, QD
     Route: 048
  5. INDOMET                            /00003801/ [Concomitant]
     Indication: ARTHRALGIA
     Dosage: UNK, TID
     Route: 048
  6. ARCOXIA [Concomitant]
     Dosage: 90 MG, UNK
     Route: 048

REACTIONS (3)
  - COUGH [None]
  - NASAL CONGESTION [None]
  - NASAL MUCOSAL DISORDER [None]
